FAERS Safety Report 9782551 (Version 1)
Quarter: 2013Q4

REPORT INFORMATION
  Report Type: Spontaneous
  Country: FR (occurrence: FR)
  Receive Date: 20131226
  Receipt Date: 20131226
  Transmission Date: 20140711
  Serious: Yes (Death)
  Sender: FDA-Public Use
  Company Number: FR-B.I. PHARMACEUTICALS,INC./RIDGEFIELD-2013-BI-42902FF

PATIENT
  Age: 59 Year
  Sex: Male

DRUGS (1)
  1. PRADAXA [Suspect]
     Indication: ARRHYTHMIA SUPRAVENTRICULAR
     Dosage: 300 MG
     Route: 048
     Dates: start: 201304, end: 20130616

REACTIONS (2)
  - Aortic aneurysm rupture [Fatal]
  - Condition aggravated [Fatal]
